FAERS Safety Report 7879923-7 (Version None)
Quarter: 2011Q4

REPORT INFORMATION
  Report Type: 
  Country: None (occurrence: None)
  Receive Date: 20111101
  Receipt Date: 20111026
  Transmission Date: 20120403
  Serious: Yes (Other)
  Sender: FDA-Public Use
  Company Number: BR-PFIZER INC-2011261057

PATIENT
  Age: 64 Year
  Sex: Female
  Weight: 70 kg

DRUGS (8)
  1. OMEPRAZOLE [Concomitant]
     Indication: PROPHYLAXIS
     Dosage: UNK, ONCE DAILY
  2. LEVOTHYROXINE SODIUM [Concomitant]
     Indication: THYROID NEOPLASM
     Dosage: 25 MG, 1X/DAY
     Dates: start: 19960101
  3. LIPLESS [Concomitant]
     Indication: BLOOD CHOLESTEROL
     Dosage: 100 MG, 1X/DAY
     Dates: start: 19960101
  4. ESTRADIOL [Concomitant]
     Indication: THYROID NEOPLASM
     Dosage: 1 MG, 1X/DAY
     Dates: start: 19960101
  5. VARENICLINE TARTRATE [Suspect]
     Indication: TOBACCO USER
     Dosage: 0.5 MG, 1X/DAY
     Route: 048
     Dates: start: 20111022
  6. CITALOPRAM [Concomitant]
     Indication: DEPRESSION
     Dosage: 20 MG, 1X/DAY
  7. SIMVASTATIN [Concomitant]
     Indication: BLOOD CHOLESTEROL
     Dosage: UNK, ONCE DAILY
     Dates: start: 19960101
  8. ATACAND [Concomitant]
     Indication: HYPERTENSION
     Dosage: UNK, ONCE DAILY
     Dates: start: 19960101

REACTIONS (2)
  - DYSENTERY [None]
  - DYSGEUSIA [None]
